FAERS Safety Report 5023257-5 (Version None)
Quarter: 2006Q2

REPORT INFORMATION
  Report Type: 
  Country: None (occurrence: None)
  Receive Date: 20060605
  Receipt Date: 20060518
  Transmission Date: 20061013
  Serious: Yes (Disabling)
  Sender: FDA-Public Use
  Company Number: 8016448

PATIENT
  Sex: Male
  Weight: 95 kg

DRUGS (3)
  1. KEPPRA [Suspect]
  2. KEPPRA [Suspect]
     Dosage: 500 MG/D
  3. KEPPRA [Suspect]
     Dosage: 250 MG /D

REACTIONS (4)
  - BALANCE DISORDER [None]
  - DISORIENTATION [None]
  - DIZZINESS [None]
  - POST PROCEDURAL COMPLICATION [None]
